FAERS Safety Report 22134983 (Version 1)
Quarter: 2023Q1

REPORT INFORMATION
  Report Type: Spontaneous
  Country: US (occurrence: None)
  Receive Date: 20230323
  Receipt Date: 20230323
  Transmission Date: 20230418
  Serious: Yes (Death)
  Sender: FDA-Public Use
  Company Number: None

PATIENT
  Age: 20 Year
  Sex: Female

DRUGS (1)
  1. PRALUENT [Suspect]
     Active Substance: ALIROCUMAB
     Dates: start: 20210526, end: 20230308

REACTIONS (4)
  - Peritonitis [None]
  - Unevaluable event [None]
  - Renal failure [None]
  - Disease complication [None]

NARRATIVE: CASE EVENT DATE: 20230308
